FAERS Safety Report 4477246-X (Version None)
Quarter: 2004Q4

REPORT INFORMATION
  Report Type: 
  Country: None (occurrence: None)
  Receive Date: 20041013
  Receipt Date: 20040930
  Transmission Date: 20050328
  Serious: Yes (Death, Life-Threatening)
  Sender: FDA-Public Use
  Company Number: F01200402907

PATIENT
  Age: 72 Year
  Sex: Female

DRUGS (2)
  1. OXALIPLATIN - SOLUTION - 100 MG/M2 [Suspect]
     Indication: BREAST CANCER
     Dosage: 150 MG Q3W, INTRAVENOUS NOS
     Route: 042
     Dates: start: 20040909, end: 20040909
  2. VINORELBINE - SOLUTION - 25 MG/M2 [Suspect]
     Dosage: 46 MG ON D1 AND D8, Q3W INTRAVENOUS NOS A FEW MINS
     Route: 042
     Dates: start: 20040916, end: 20040916

REACTIONS (7)
  - DIARRHOEA [None]
  - FEBRILE NEUTROPENIA [None]
  - HAEMOGLOBIN DECREASED [None]
  - HYPOTENSION [None]
  - SEPSIS [None]
  - SERRATIA INFECTION [None]
  - WHITE BLOOD CELL COUNT DECREASED [None]
